FAERS Safety Report 15506952 (Version 1)
Quarter: 2018Q4

REPORT INFORMATION
  Report Type: Spontaneous
  Country: US (occurrence: US)
  Receive Date: 20181016
  Receipt Date: 20181016
  Transmission Date: 20190205
  Serious: Yes (Death, Other)
  Sender: FDA-Public Use
  Company Number: US-BAXTER-2018BAX025689

PATIENT
  Sex: Female

DRUGS (1)
  1. PRISMASOL BGK4/2.5 [Suspect]
     Active Substance: ANHYDROUS DEXTROSE\CALCIUM CHLORIDE\LACTIC ACID\MAGNESIUM CHLORIDE\POTASSIUM CHLORIDE\SODIUM BICARBONATE\SODIUM CHLORIDE
     Indication: RENAL REPLACEMENT THERAPY
     Route: 010

REACTIONS (3)
  - Death [Fatal]
  - Cardio-respiratory arrest [Unknown]
  - Hypotension [Unknown]

NARRATIVE: CASE EVENT DATE: 20181002
